FAERS Safety Report 7592879-X (Version None)
Quarter: 2011Q2

REPORT INFORMATION
  Report Type: 
  Country: None (occurrence: None)
  Receive Date: 20110628
  Receipt Date: 20110615
  Transmission Date: 20111010
  Serious: Yes (Hospitalization)
  Sender: FDA-Public Use
  Company Number: 1000021734

PATIENT
  Sex: Male

DRUGS (1)
  1. LEXAPRO [Suspect]

REACTIONS (2)
  - LEUKOCYTOSIS [None]
  - PANCREATITIS ACUTE [None]
